FAERS Safety Report 20444047 (Version 1)
Quarter: 2022Q1

REPORT INFORMATION
  Report Type: Spontaneous
  Country: US (occurrence: US)
  Receive Date: 20220208
  Receipt Date: 20220208
  Transmission Date: 20220423
  Serious: Yes (Hospitalization)
  Sender: FDA-Public Use
  Company Number: US-ROCHE-3014210

PATIENT
  Sex: Male
  Weight: 54.299 kg

DRUGS (3)
  1. GANCICLOVIR [Suspect]
     Active Substance: GANCICLOVIR
     Indication: Product used for unknown indication
     Dosage: 136 MG, DAILY (13.6 ML/HR)
     Route: 042
  2. VALGANCICLOVIR [Suspect]
     Active Substance: VALGANCICLOVIR
     Indication: Renal transplant
     Dosage: 900 MG, DAILY (450 MG)
     Route: 048
  3. CELLCEPT [Suspect]
     Active Substance: MYCOPHENOLATE MOFETIL
     Indication: Product used for unknown indication
     Dosage: 1000 MG, BID (PER MEDICATION LIST)
     Route: 048

REACTIONS (5)
  - Procedural pain [Unknown]
  - Hypophosphataemia [Unknown]
  - Leukopenia [Recovering/Resolving]
  - Anaemia [Recovering/Resolving]
  - Henoch-Schonlein purpura [Unknown]
